FAERS Safety Report 23205359 (Version 1)
Quarter: 2023Q4

REPORT INFORMATION
  Report Type: Spontaneous
  Country: US (occurrence: None)
  Receive Date: 20231120
  Receipt Date: 20231120
  Transmission Date: 20240109
  Serious: Yes (Hospitalization)
  Sender: FDA-Public Use
  Company Number: None

PATIENT
  Age: 81 Year
  Sex: Female
  Weight: 62.2 kg

DRUGS (1)
  1. TALVEY [Suspect]
     Active Substance: TALQUETAMAB-TGVS
     Indication: Plasma cell myeloma
     Dosage: FREQUENCY : ONCE;?
     Route: 058

REACTIONS (3)
  - Hypotension [None]
  - Pyrexia [None]
  - Blood pressure systolic decreased [None]

NARRATIVE: CASE EVENT DATE: 20231114
